FAERS Safety Report 8616929-4 (Version None)
Quarter: 2012Q3

REPORT INFORMATION
  Report Type: 
  Country: None (occurrence: None)
  Receive Date: 20120823
  Receipt Date: 20120813
  Transmission Date: 20120928
  Serious: No
  Sender: FDA-Public Use
  Company Number: US-009507513-1208USA006098

PATIENT

DRUGS (4)
  1. DIOVAN [Concomitant]
  2. JANUVIA [Suspect]
     Indication: DIABETES MELLITUS
     Dosage: 100 MG, QD
     Route: 048
     Dates: start: 20120806
  3. LIPITOR [Concomitant]
  4. PLAVIX [Concomitant]

REACTIONS (1)
  - DRUG INEFFECTIVE [None]
